FAERS Safety Report 5046833-2 (Version None)
Quarter: 2006Q2

REPORT INFORMATION
  Report Type: 
  Country: None (occurrence: None)
  Receive Date: 20060630
  Receipt Date: 20060623
  Transmission Date: 20061013
  Serious: Yes (Death, Hospitalization)
  Sender: FDA-Public Use
  Company Number: TCI2006A01488

PATIENT
  Age: 85 Year
  Sex: Male

DRUGS (7)
  1. LEUPROLIDE ACETATE [Suspect]
     Indication: PROSTATE CANCER
     Dosage: 3.75 MG (3.75 MG, 1 IN 28 D)
     Route: 058
     Dates: start: 20060123, end: 20060220
  2. CASODEX [Suspect]
     Indication: PROSTATE CANCER
     Dosage: 80 MG (80 MG, 1 IN 1 D)
     Route: 048
     Dates: start: 20051221, end: 20060315
  3. RESTREAM (TAMSULOSIN HYDROCHLORIDE) (CAPSULES) [Concomitant]
  4. EVIPROSTAT (EVIPROSTAT) (TABLETS) [Concomitant]
  5. ALESION (EPINASTINE HYDROCHLORIDE) (TABLETS) [Concomitant]
  6. ZANTAC (RANITIDINE HYDROCHLORIDE) (TABLETS) [Concomitant]
  7. LAXOBERON (SODIUM PICOSULFATE) (SOLUTION) [Concomitant]

REACTIONS (5)
  - CHEST X-RAY ABNORMAL [None]
  - DYSPNOEA [None]
  - HAEMOPTYSIS [None]
  - INTERSTITIAL LUNG DISEASE [None]
  - PLEURAL EFFUSION [None]
